FAERS Safety Report 10666727 (Version 3)
Quarter: 2016Q4

REPORT INFORMATION
  Report Type: Report from Study
  Country: US (occurrence: US)
  Receive Date: 20141222
  Receipt Date: 20161012
  Transmission Date: 20170206
  Serious: Yes (Hospitalization, Other)
  Sender: FDA-Public Use
  Company Number: US-ROCHE-1510292

PATIENT
  Age: 48 Year
  Sex: Female
  Weight: 121.8 kg

DRUGS (21)
  1. BEVACIZUMAB [Suspect]
     Active Substance: BEVACIZUMAB
     Dosage: COURSE:5
     Route: 042
     Dates: start: 20140918
  2. ABT-888 [Suspect]
     Active Substance: VELIPARIB
     Dosage: COURSE:2
     Route: 048
     Dates: start: 20140717
  3. BEVACIZUMAB [Suspect]
     Active Substance: BEVACIZUMAB
     Dosage: COURSE:9
     Route: 042
     Dates: start: 20141212
  4. ABT-888 [Suspect]
     Active Substance: VELIPARIB
     Dosage: COURSE:5
     Route: 048
     Dates: start: 20140918
  5. ABT-888 [Suspect]
     Active Substance: VELIPARIB
     Dosage: COURSE:4
     Route: 048
     Dates: start: 20140828
  6. CARBOPLATIN. [Suspect]
     Active Substance: CARBOPLATIN
     Indication: OVARIAN EPITHELIAL CANCER
     Dosage: AUC = 6 OVER 30 MINS ON DAY 1 OF CYCLE 1-6
     Route: 042
  7. BEVACIZUMAB [Suspect]
     Active Substance: BEVACIZUMAB
     Dosage: COURSE:2
     Route: 042
     Dates: start: 20140717
  8. BEVACIZUMAB [Suspect]
     Active Substance: BEVACIZUMAB
     Dosage: COURSE:3
     Route: 042
     Dates: start: 20140807
  9. ABT-888 [Suspect]
     Active Substance: VELIPARIB
     Indication: OVARIAN EPITHELIAL CANCER
     Dosage: (400 MG 2 TIMES A DAY ON DAYS -2-5 OF CYCLE 1-6)
     Route: 048
     Dates: start: 20140620
  10. ABT-888 [Suspect]
     Active Substance: VELIPARIB
     Dosage: COURSE:6
     Route: 048
     Dates: start: 20141009
  11. PACLITAXEL. [Suspect]
     Active Substance: PACLITAXEL
     Indication: OVARIAN EPITHELIAL CANCER
     Dosage: 175 MG/M2 OVER 3 HRS ON DAY 1 OF CYCLE 1-6
     Route: 042
  12. BEVACIZUMAB [Suspect]
     Active Substance: BEVACIZUMAB
     Indication: OVARIAN EPITHELIAL CANCER
     Dosage: 5MG/KG OVER 30-90 MINS ON DAY 1 OF CYCLE 2-6
     Route: 042
     Dates: start: 20140620
  13. ABT-888 [Suspect]
     Active Substance: VELIPARIB
     Dosage: COURSE:7
     Route: 048
     Dates: start: 20141030
  14. BEVACIZUMAB [Suspect]
     Active Substance: BEVACIZUMAB
     Dosage: COURSE:6
     Route: 042
     Dates: start: 20141009
  15. BEVACIZUMAB [Suspect]
     Active Substance: BEVACIZUMAB
     Dosage: COURSE:7
     Route: 042
     Dates: start: 20141030
  16. BEVACIZUMAB [Suspect]
     Active Substance: BEVACIZUMAB
     Dosage: COURSE:10
     Route: 042
     Dates: start: 20150110
  17. BEVACIZUMAB [Suspect]
     Active Substance: BEVACIZUMAB
     Dosage: COURSE:11 ?(COURSE:12 TO 22)?13/FEB/2015, 06/MAR/2015, 27/MAR/2015, 17/APR/2015, 08/MAY/2015, 29/MAY
     Route: 042
     Dates: start: 20150123
  18. ABT-888 [Suspect]
     Active Substance: VELIPARIB
     Dosage: COURSE:8?(COURSE:9 TO 22) DOSE NOT REPORTED.?12/DEC/2014, 10/JAN/2015, 23/JAN/2015, 13/FEB/2015, 06/
     Route: 048
     Dates: start: 20141121
  19. BEVACIZUMAB [Suspect]
     Active Substance: BEVACIZUMAB
     Dosage: COURSE:4
     Route: 042
     Dates: start: 20140828
  20. BEVACIZUMAB [Suspect]
     Active Substance: BEVACIZUMAB
     Dosage: COURSE:8
     Route: 042
     Dates: start: 20141121
  21. ABT-888 [Suspect]
     Active Substance: VELIPARIB
     Dosage: COURSE:3
     Route: 048
     Dates: start: 20140807

REACTIONS (12)
  - Hypokalaemia [Recovering/Resolving]
  - Muscular weakness [Recovering/Resolving]
  - Febrile neutropenia [Unknown]
  - Hypomagnesaemia [Recovering/Resolving]
  - Neutrophil count decreased [Unknown]
  - Lung infection [Unknown]
  - Paraesthesia [Recovering/Resolving]
  - White blood cell count decreased [Unknown]
  - Anaemia [Recovering/Resolving]
  - Hypomagnesaemia [Unknown]
  - Hypokalaemia [Unknown]
  - Hypertension [Unknown]

NARRATIVE: CASE EVENT DATE: 20140807
